FAERS Safety Report 6261344-4 (Version None)
Quarter: 2009Q3

REPORT INFORMATION
  Report Type: 
  Country: None (occurrence: None)
  Receive Date: 20090709
  Receipt Date: 20090703
  Transmission Date: 20100115
  Serious: Yes (Other)
  Sender: FDA-Public Use
  Company Number: BR-ASTRAZENECA-2009UW18754

PATIENT
  Age: 59 Year
  Sex: Female

DRUGS (1)
  1. ATENOL [Suspect]
     Indication: HYPERTENSION
     Route: 048

REACTIONS (1)
  - CATARACT [None]
